FAERS Safety Report 25060618 (Version 1)
Quarter: 2025Q1

REPORT INFORMATION
  Report Type: Spontaneous
  Country: CA (occurrence: CA)
  Receive Date: 20250310
  Receipt Date: 20250310
  Transmission Date: 20250409
  Serious: Yes (Life-Threatening, Other)
  Sender: Kenvue
  Company Number: CA-KENVUE-20250300829

PATIENT

DRUGS (5)
  1. IBUPROFEN [Suspect]
     Active Substance: IBUPROFEN
     Indication: Abdominal pain upper
     Dosage: 400 MILLIGRAM, EVERY 4 HOUR, 6 EVERY 1 DAYS
     Route: 048
  2. PAXIL [Suspect]
     Active Substance: PAROXETINE HYDROCHLORIDE
     Indication: Product used for unknown indication
     Dosage: 40 MILLIGRAM, ONCE A DAY, 1 EVERY 1 DAYS
     Route: 048
  3. AMITRIPTYLINE [Concomitant]
     Active Substance: AMITRIPTYLINE
     Indication: Product used for unknown indication
     Route: 065
  4. DICYCLOMINE HYDROCHLORIDE [Concomitant]
     Active Substance: DICYCLOMINE HYDROCHLORIDE
     Indication: Product used for unknown indication
     Route: 065
  5. QUETIAPINE [Concomitant]
     Active Substance: QUETIAPINE
     Indication: Product used for unknown indication
     Route: 065

REACTIONS (6)
  - Abdominal abscess [Recovering/Resolving]
  - Asthenia [Recovering/Resolving]
  - Duodenal perforation [Recovering/Resolving]
  - Duodenal ulcer [Recovering/Resolving]
  - Peritonitis [Recovering/Resolving]
  - Upper gastrointestinal haemorrhage [Recovering/Resolving]
